FAERS Safety Report 6156314-0 (Version None)
Quarter: 2009Q2

REPORT INFORMATION
  Report Type: 
  Country: None (occurrence: None)
  Receive Date: 20090413
  Receipt Date: 20090331
  Transmission Date: 20091009
  Serious: Yes (Other)
  Sender: FDA-Public Use
  Company Number: 230704K08USA

PATIENT
  Age: 37 Year
  Sex: Female
  Weight: 86 kg

DRUGS (7)
  1. REBIF [Suspect]
     Indication: MULTIPLE SCLEROSIS
     Dosage: 44 MCG, SUBCUTANEOUS ; 44 MCG, 3 IN 1 WEEKS, SUBCUTANEOUS
     Route: 058
     Dates: start: 20060206, end: 20081001
  2. REBIF [Suspect]
     Indication: MULTIPLE SCLEROSIS
     Dosage: 44 MCG, SUBCUTANEOUS ; 44 MCG, 3 IN 1 WEEKS, SUBCUTANEOUS
     Route: 058
     Dates: start: 20081201
  3. TOPAMAX [Concomitant]
  4. WELLBUTRIN [Concomitant]
  5. LORAZEPAM [Concomitant]
  6. ALEVE (CAPLET) [Concomitant]
  7. MECLIZINE [Concomitant]

REACTIONS (2)
  - BLINDNESS UNILATERAL [None]
  - RETINAL VASCULAR OCCLUSION [None]
